FAERS Safety Report 8886467 (Version 3)
Quarter: 2013Q1

REPORT INFORMATION
  Report Type: Spontaneous
  Country: US (occurrence: US)
  Receive Date: 20121105
  Receipt Date: 20130227
  Transmission Date: 20140127
  Serious: Yes (Other)
  Sender: FDA-Public Use
  Company Number: PHEH2012US021557

PATIENT
  Sex: Female

DRUGS (5)
  1. DIOVAN HCT [Suspect]
     Indication: HYPERTENSION
     Dosage: 1 DF (300MG VALSARTAN AND 25MG HCTZ), DAILY
     Route: 048
  2. VALSARTAN [Suspect]
     Dosage: UNK UKN, UNK
  3. COREG [Concomitant]
  4. PROGESTERONE [Concomitant]
  5. MULTI-VIT [Concomitant]

REACTIONS (1)
  - Cataract [Recovered/Resolved]
